FAERS Safety Report 6255309-6 (Version None)
Quarter: 2009Q3

REPORT INFORMATION
  Report Type: 
  Country: None (occurrence: None)
  Receive Date: 20090702
  Receipt Date: 20090623
  Transmission Date: 20100115
  Serious: Yes (Other)
  Sender: FDA-Public Use
  Company Number: BR-JNJFOC-20090609380

PATIENT
  Age: 27 Year
  Sex: Male

DRUGS (2)
  1. INVEGA [Suspect]
     Indication: DEPRESSION
     Route: 048
  2. DIAZEPAM [Concomitant]
     Indication: DEPRESSION

REACTIONS (3)
  - AGGRESSION [None]
  - DYSARTHRIA [None]
  - RESTLESSNESS [None]
